FAERS Safety Report 6015577-2 (Version None)
Quarter: 2008Q4

REPORT INFORMATION
  Report Type: 
  Country: None (occurrence: None)
  Receive Date: 20081219
  Receipt Date: 20081219
  Transmission Date: 20090506
  Serious: Yes (Other)
  Sender: FDA-Public Use
  Company Number: None

PATIENT
  Age: 14 Year
  Sex: Male
  Weight: 53.5244 kg

DRUGS (1)
  1. OSELTAMIVIR PHOSPHATE 75MG ROCHE [Suspect]
     Indication: INFLUENZA
     Dosage: ONE CAPSULE BY MOUTH 2TIMES DAILY 5 DAYS PO
     Route: 048
     Dates: start: 20081217, end: 20081217

REACTIONS (5)
  - ABNORMAL DREAMS [None]
  - DELIRIUM [None]
  - DELUSION [None]
  - DISORIENTATION [None]
  - SPEECH DISORDER [None]
